FAERS Safety Report 8005102-9 (Version None)
Quarter: 2011Q4

REPORT INFORMATION
  Report Type: 
  Country: None (occurrence: None)
  Receive Date: 20111223
  Receipt Date: 20111212
  Transmission Date: 20120403
  Serious: Yes (Hospitalization)
  Sender: FDA-Public Use
  Company Number: PHHY2011JP92862

PATIENT
  Age: 62 Year
  Sex: Female

DRUGS (1)
  1. GLEEVEC [Suspect]
     Indication: GASTROINTESTINAL STROMAL TUMOUR
     Dosage: 400 MG, DAILY
     Route: 048
     Dates: start: 20101001

REACTIONS (6)
  - HYPOGLYCAEMIC UNCONSCIOUSNESS [None]
  - GENERALISED OEDEMA [None]
  - VOMITING [None]
  - CONVULSION [None]
  - DECREASED APPETITE [None]
  - LOSS OF CONSCIOUSNESS [None]
